FAERS Safety Report 19647511 (Version 1)
Quarter: 2021Q3

REPORT INFORMATION
  Report Type: Spontaneous
  Country: JP (occurrence: JP)
  Receive Date: 20210802
  Receipt Date: 20210802
  Transmission Date: 20211014
  Serious: Yes (Other)
  Sender: FDA-Public Use
  Company Number: JP-JNJFOC-20210647850

PATIENT
  Age: 53 Year
  Sex: Male

DRUGS (29)
  1. TOPINA [Suspect]
     Active Substance: TOPIRAMATE
     Indication: EPILEPSY
     Route: 048
     Dates: start: 20101214
  2. FLIVAS [Concomitant]
     Active Substance: NAFTOPIDIL
  3. CALONAL [Concomitant]
     Active Substance: ACETAMINOPHEN
  4. DAIKENCHUTO [Concomitant]
     Active Substance: HERBALS
  5. RIZABEN [Concomitant]
     Active Substance: TRANILAST
  6. PREDONINE [Concomitant]
     Active Substance: PREDNISOLONE
     Route: 048
     Dates: start: 20010515
  7. MEXITIL [Concomitant]
     Active Substance: MEXILETINE HYDROCHLORIDE
  8. NEUROTROPIN [RABBIT VACCINIA EXTRACT] [Concomitant]
     Active Substance: ORYCTOLAGUS CUNICULUS SKIN
  9. BENET [Concomitant]
     Active Substance: RISEDRONATE SODIUM
     Dates: start: 201111
  10. ACETAMINOPHEN. [Concomitant]
     Active Substance: ACETAMINOPHEN
  11. ALFAROL [Concomitant]
     Active Substance: ALFACALCIDOL
     Dates: start: 201111
  12. URSODEOXYCHOLIC ACID [Concomitant]
     Active Substance: URSODIOL
  13. THEO?DUR [Concomitant]
     Active Substance: THEOPHYLLINE ANHYDROUS
  14. KIPRES [Concomitant]
     Active Substance: MONTELUKAST SODIUM
  15. TOPINA [Suspect]
     Active Substance: TOPIRAMATE
     Dosage: IN THE EVENING
     Route: 048
     Dates: start: 20170221, end: 20210617
  16. GABAPEN [Concomitant]
     Active Substance: GABAPENTIN
     Route: 048
     Dates: end: 2013
  17. ASPARA?CA [Concomitant]
     Active Substance: CALCIUM ASPARTATE
     Dates: start: 201111, end: 201406
  18. CERCINE [Concomitant]
     Active Substance: DIAZEPAM
  19. TOPINA [Suspect]
     Active Substance: TOPIRAMATE
     Dosage: MORNING AND EVENING
     Route: 048
     Dates: start: 20110111
  20. PREDONINE [Concomitant]
     Active Substance: PREDNISOLONE
     Route: 048
  21. CERNILTON [CERNITIN GBX;CERNITIN T60] [Concomitant]
  22. LIPITOR [Concomitant]
     Active Substance: ATORVASTATIN CALCIUM
  23. NEXIUM [Concomitant]
     Active Substance: ESOMEPRAZOLE MAGNESIUM
  24. GLUCONSAN K [Concomitant]
     Active Substance: POTASSIUM GLUCONATE
  25. METHYCOBAL [Concomitant]
     Active Substance: METHYLCOBALAMIN
  26. GASMOTIN [Concomitant]
     Active Substance: MOSAPRIDE CITRATE
  27. SELBEX [Concomitant]
     Active Substance: TEPRENONE
  28. SYMBICORT [Concomitant]
     Active Substance: BUDESONIDE\FORMOTEROL FUMARATE DIHYDRATE
  29. MUCODYNE [Concomitant]
     Active Substance: CARBOCYSTEINE

REACTIONS (8)
  - Ureterolithiasis [Unknown]
  - Benign prostatic hyperplasia [Unknown]
  - Hydronephrosis [Unknown]
  - Somnolence [Unknown]
  - Nephrolithiasis [Unknown]
  - Pyelonephritis [Unknown]
  - Blood creatinine increased [Unknown]
  - Urinary tract infection [Unknown]

NARRATIVE: CASE EVENT DATE: 2013
